FAERS Safety Report 15025375 (Version 1)
Quarter: 2018Q2

REPORT INFORMATION
  Report Type: Report from Study
  Country: US (occurrence: US)
  Receive Date: 20180618
  Receipt Date: 20180618
  Transmission Date: 20180711
  Serious: No
  Sender: FDA-Public Use
  Company Number: PHEH2018US024208

PATIENT
  Sex: Female

DRUGS (1)
  1. METHADONE HYDROCHLORIDE TABLETS USP [Suspect]
     Active Substance: METHADONE HYDROCHLORIDE
     Indication: DETOXIFICATION
     Route: 065

REACTIONS (1)
  - Hypersensitivity [Unknown]
